FAERS Safety Report 9016798 (Version 1)
Quarter: 2013Q1

REPORT INFORMATION
  Report Type: Spontaneous
  Country: AR (occurrence: AR)
  Receive Date: 20130117
  Receipt Date: 20130117
  Transmission Date: 20140127
  Serious: Yes (Other)
  Sender: FDA-Public Use
  Company Number: PHHY2011AR88148

PATIENT
  Age: 73 Year
  Sex: Male

DRUGS (2)
  1. TASIGNA [Suspect]
     Indication: CHRONIC MYELOID LEUKAEMIA
     Dosage: 800 MG, DAILY (200 MG FOUR TIMES A DAY)
     Route: 048
  2. TASIGNA [Suspect]
     Dosage: 800 MG, UNK
     Route: 048

REACTIONS (8)
  - Colon cancer [Unknown]
  - Constipation [Unknown]
  - Abdominal pain upper [Recovered/Resolved]
  - Haematochezia [Recovered/Resolved]
  - Second primary malignancy [Unknown]
  - Hearing impaired [Not Recovered/Not Resolved]
  - Concomitant disease aggravated [Not Recovered/Not Resolved]
  - Local swelling [Not Recovered/Not Resolved]
